FAERS Safety Report 19657843 (Version 2)
Quarter: 2021Q3

REPORT INFORMATION
  Report Type: Report from Study
  Country: BR (occurrence: BR)
  Receive Date: 20210804
  Receipt Date: 20210811
  Transmission Date: 20211014
  Serious: Yes (Other)
  Sender: FDA-Public Use
  Company Number: ALC2021BR004581

PATIENT
  Age: 66 Year
  Sex: Female

DRUGS (4)
  1. SYSTANE (POLYETHYLENE GLYCOL 400\PROPYLENE GLYCOL) [Suspect]
     Active Substance: POLYETHYLENE GLYCOL 400\PROPYLENE GLYCOL
     Indication: DRY EYE
     Dosage: UNK UNK, TID
     Route: 065
  2. TAMOXIFEN [Concomitant]
     Active Substance: TAMOXIFEN
     Indication: PRODUCT USED FOR UNKNOWN INDICATION
     Dosage: UNK
     Route: 065
  3. LORATADIN [Concomitant]
     Active Substance: LORATADINE
     Indication: PRODUCT USED FOR UNKNOWN INDICATION
     Dosage: UNK
     Route: 016
  4. ZOMETA [Suspect]
     Active Substance: ZOLEDRONIC ACID
     Indication: PRODUCT USED FOR UNKNOWN INDICATION
     Dosage: UNK
     Route: 065

REACTIONS (25)
  - Movement disorder [Unknown]
  - Arthralgia [Unknown]
  - Muscular weakness [Unknown]
  - Rhinitis [Unknown]
  - Erythema [Unknown]
  - Application site discolouration [Recovering/Resolving]
  - Metastases to bone [Unknown]
  - Haematoma [Recovering/Resolving]
  - Skin atrophy [Unknown]
  - Nasal dryness [Unknown]
  - Vascular rupture [Unknown]
  - Vulvovaginal injury [Unknown]
  - Bone neoplasm [Recovered/Resolved]
  - Skin fissures [Recovering/Resolving]
  - Alopecia [Not Recovered/Not Resolved]
  - Haemorrhoids [Unknown]
  - Stress [Unknown]
  - Hypersensitivity [Unknown]
  - Vulvovaginal dryness [Unknown]
  - Dry skin [Unknown]
  - Fatigue [Unknown]
  - Skin exfoliation [Recovering/Resolving]
  - Spinal pain [Recovering/Resolving]
  - Peripheral swelling [Unknown]
  - Pain in extremity [Not Recovered/Not Resolved]

NARRATIVE: CASE EVENT DATE: 2016
